FAERS Safety Report 8529236 (Version 3)
Quarter: 2013Q1

REPORT INFORMATION
  Report Type: Spontaneous
  Country: US (occurrence: US)
  Receive Date: 20120425
  Receipt Date: 20130103
  Transmission Date: 20140127
  Serious: Yes (Hospitalization)
  Sender: FDA-Public Use
  Company Number: US-BAYER-2012-039095

PATIENT
  Age: 40 Year
  Sex: Female
  Weight: 63.49 kg

DRUGS (16)
  1. YASMIN [Suspect]
     Indication: CONTRACEPTION
     Dosage: UNK UNK, QD
     Route: 048
     Dates: start: 2007, end: 20100906
  2. YASMIN [Suspect]
     Indication: CONTRACEPTION
     Dosage: UNK
     Dates: start: 1997, end: 2010
  3. OCELLA [Suspect]
     Indication: CONTRACEPTION
     Dosage: UNK
     Dates: start: 2007, end: 20100906
  4. OCELLA [Suspect]
     Indication: CONTRACEPTION
     Dosage: UNK
     Dates: start: 1997, end: 2010
  5. ALTACE [Concomitant]
     Dosage: 10 MG,DAILY
  6. COREG [Concomitant]
     Dosage: 80 MG, DAILY
  7. DIGOXIN [Concomitant]
     Dosage: 0.125 MG,DAILY
  8. AMPICILLIN [Concomitant]
  9. TESSALON PERLES [Concomitant]
  10. TRICOR [Concomitant]
     Dosage: 145 MG, A DAY
  11. VICODIN [Concomitant]
     Dosage: 10/20,1 A DAY
  12. ANTIBIOTICS [Concomitant]
  13. VYTORIN [Concomitant]
     Indication: BLOOD CHOLESTEROL INCREASED
     Dosage: 10/20 MG DAILY
     Route: 048
     Dates: start: 2006
  14. PROAIR HFA [Concomitant]
     Dosage: 90 ?G, UNK
     Route: 045
  15. AMOXICILLIN [Concomitant]
     Dosage: 500 MG, UNK
     Route: 048
  16. PREDNISONE [Concomitant]
     Dosage: 20 MG, UNK
     Route: 048

REACTIONS (2)
  - Deep vein thrombosis [None]
  - Pulmonary embolism [None]
